FAERS Safety Report 17840141 (Version 1)
Quarter: 2020Q2

REPORT INFORMATION
  Report Type: Spontaneous
  Country: US (occurrence: US)
  Receive Date: 20200529
  Receipt Date: 20200529
  Transmission Date: 20200714
  Serious: No
  Sender: FDA-Public Use
  Company Number: None

PATIENT
  Age: 68 Year
  Sex: Male
  Weight: 69.75 kg

DRUGS (16)
  1. SYNTHROID [Concomitant]
     Active Substance: LEVOTHYROXINE SODIUM
  2. ZOFRAN [Concomitant]
     Active Substance: ONDANSETRON HYDROCHLORIDE
  3. NEUPOGEN [Concomitant]
     Active Substance: FILGRASTIM
  4. ATIVAN [Concomitant]
     Active Substance: LORAZEPAM
  5. DEXAMETHASONE. [Concomitant]
     Active Substance: DEXAMETHASONE
  6. MULTIVITAMIN [Concomitant]
     Active Substance: VITAMINS
  7. GRANIX [Concomitant]
     Active Substance: TBO-FILGRASTIM
  8. PEG [Concomitant]
     Active Substance: POLYETHYLENE GLYCOLS
  9. SENNA [Concomitant]
     Active Substance: SENNA LEAF\SENNOSIDES\SENNOSIDES A AND B
  10. ACYCLOVIR. [Concomitant]
     Active Substance: ACYCLOVIR
  11. PROCHLORPERAZINE. [Concomitant]
     Active Substance: PROCHLORPERAZINE
  12. ZINC. [Concomitant]
     Active Substance: ZINC
  13. FARYDAK [Suspect]
     Active Substance: PANOBINOSTAT
     Indication: PLASMA CELL MYELOMA
     Dosage: ?          OTHER FREQUENCY:3 TIMES WEEKLY;?
     Route: 048
     Dates: start: 20191223, end: 20200529
  14. TYLENOL [Concomitant]
     Active Substance: ACETAMINOPHEN
  15. MAALOX ANTACID [Concomitant]
     Active Substance: ALUMINUM HYDROXIDE\DIMETHICONE\MAGNESIUM HYDROXIDE
  16. AMIODARONE [Concomitant]
     Active Substance: AMIODARONE

REACTIONS (1)
  - Disease progression [None]

NARRATIVE: CASE EVENT DATE: 20200529
